FAERS Safety Report 16319645 (Version 1)
Quarter: 2019Q2

REPORT INFORMATION
  Report Type: Spontaneous
  Country: GB (occurrence: GB)
  Receive Date: 20190516
  Receipt Date: 20190516
  Transmission Date: 20190711
  Serious: Yes (Death, Other)
  Sender: FDA-Public Use
  Company Number: GB-ROCHE-2319172

PATIENT
  Sex: Male
  Weight: 22.5 kg

DRUGS (2)
  1. DIAZEPAM. [Suspect]
     Active Substance: DIAZEPAM
     Indication: PROPHYLAXIS
     Route: 042
  2. DIAZEPAM. [Suspect]
     Active Substance: DIAZEPAM
     Route: 042

REACTIONS (3)
  - Apnoea [Unknown]
  - Cardiac arrest [Fatal]
  - Heart sounds abnormal [Unknown]
